FAERS Safety Report 5120406-5 (Version None)
Quarter: 2006Q4

REPORT INFORMATION
  Report Type: 
  Country: None (occurrence: None)
  Receive Date: 20061004
  Receipt Date: 20060804
  Transmission Date: 20070319
  Serious: Yes (Other)
  Sender: FDA-Public Use
  Company Number: NL-GLAXOSMITHKLINE-B0433309A

PATIENT
  Age: 7 Year
  Sex: Male

DRUGS (1)
  1. FLIXOTIDE [Suspect]
     Indication: PSEUDOCROUP
     Route: 055

REACTIONS (2)
  - CHEST DISCOMFORT [None]
  - PSEUDOCROUP [None]
